FAERS Safety Report 8829632 (Version 2)
Quarter: 2015Q1

REPORT INFORMATION
  Report Type: Report from Study
  Country: US (occurrence: US)
  Receive Date: 20121008
  Receipt Date: 20150128
  Transmission Date: 20150721
  Serious: Yes (Death, Hospitalization)
  Sender: FDA-Public Use
  Company Number: US-ROCHE-1123635

PATIENT
  Age: 75 Year
  Sex: Male
  Weight: 55.39 kg

DRUGS (16)
  1. RITUXAN [Suspect]
     Active Substance: RITUXIMAB
     Route: 042
  2. BETAPACE [Concomitant]
     Active Substance: SOTALOL HYDROCHLORIDE
     Route: 065
  3. RITUXAN [Suspect]
     Active Substance: RITUXIMAB
     Indication: HYPOGAMMAGLOBULINAEMIA
     Route: 042
  4. TYLENOL [Concomitant]
     Active Substance: ACETAMINOPHEN
  5. PREDNISONE. [Concomitant]
     Active Substance: PREDNISONE
     Route: 065
  6. ACYCLOVIR. [Concomitant]
     Active Substance: ACYCLOVIR
  7. TOBRAMYCIN. [Concomitant]
     Active Substance: TOBRAMYCIN
     Route: 065
     Dates: start: 20020328
  8. RITUXAN [Suspect]
     Active Substance: RITUXIMAB
     Indication: CHRONIC LYMPHOCYTIC LEUKAEMIA
     Route: 042
     Dates: start: 2001
  9. DIFLUCAN [Concomitant]
     Active Substance: FLUCONAZOLE
  10. DEMEROL [Concomitant]
     Active Substance: MEPERIDINE HYDROCHLORIDE
     Route: 065
  11. BENADRYL [Concomitant]
     Active Substance: DIPHENHYDRAMINE HYDROCHLORIDE
  12. FORTAZ [Concomitant]
     Active Substance: CEFTAZIDIME SODIUM
     Route: 065
  13. LANOXIN [Concomitant]
     Active Substance: DIGOXIN
     Route: 065
  14. PEPCID [Concomitant]
     Active Substance: FAMOTIDINE
     Route: 065
  15. GLUCOTROL [Concomitant]
     Active Substance: GLIPIZIDE
     Route: 065
  16. VANCOMYCIN [Concomitant]
     Active Substance: VANCOMYCIN

REACTIONS (21)
  - Pneumonia [Unknown]
  - Dysphonia [Unknown]
  - Weight decreased [Unknown]
  - Chest pain [Unknown]
  - Constipation [Unknown]
  - Asthenia [Unknown]
  - Cough [Unknown]
  - Respiratory rate decreased [Unknown]
  - Pyrexia [Unknown]
  - Neck pain [Unknown]
  - Death [Fatal]
  - Chills [Unknown]
  - Foaming at mouth [Unknown]
  - Oropharyngeal pain [Unknown]
  - Fatigue [Unknown]
  - Back pain [Unknown]
  - Dyspnoea [Unknown]
  - Dysphagia [Unknown]
  - Musculoskeletal pain [Unknown]
  - Escherichia sepsis [Unknown]
  - Insomnia [Unknown]

NARRATIVE: CASE EVENT DATE: 20020313
